FAERS Safety Report 6994620-8 (Version None)
Quarter: 2010Q3

REPORT INFORMATION
  Report Type: 
  Country: None (occurrence: None)
  Receive Date: 20100916
  Receipt Date: 20100916
  Transmission Date: 20110219
  Serious: Yes (Other)
  Sender: FDA-Public Use
  Company Number: None

PATIENT
  Age: 62 Year
  Sex: Female
  Weight: 51 kg

DRUGS (3)
  1. BEVACIZUMAB 400MG /16ML GENENTECH [Suspect]
     Indication: BREAST CANCER
     Dosage: 770MG EVERY 3 WEEKS INTRAVENOUS
     Route: 042
     Dates: start: 20090707, end: 20091027
  2. BEVACIZUMAB [Suspect]
  3. EXTERNAL BEAM RADIATION THERAPY [Concomitant]

REACTIONS (2)
  - ESCHAR [None]
  - WOUND NECROSIS [None]
